FAERS Safety Report 23198876 (Version 3)
Quarter: 2024Q2

REPORT INFORMATION
  Report Type: Spontaneous
  Country: US (occurrence: US)
  Receive Date: 20231117
  Receipt Date: 20240614
  Transmission Date: 20240716
  Serious: Yes (Other)
  Sender: FDA-Public Use
  Company Number: US-PFIZER INC-PV202300162208

PATIENT
  Age: 65 Year
  Sex: Female
  Weight: 90.72 kg

DRUGS (2)
  1. NICOTROL [Suspect]
     Active Substance: NICOTINE
     Indication: Headache
     Dosage: 10MG PER CARTRIDGE, GOES IN NOSE, ONE SPRAY EACH NOSTRIL, AS NEEDED
     Route: 045
     Dates: start: 2004
  2. NICOTROL [Suspect]
     Active Substance: NICOTINE
     Indication: Migraine

REACTIONS (3)
  - Drug dependence [Unknown]
  - Off label use [Unknown]
  - Drug effective for unapproved indication [Unknown]
